FAERS Safety Report 7150840-3 (Version None)
Quarter: 2010Q4

REPORT INFORMATION
  Report Type: 
  Country: None (occurrence: None)
  Receive Date: 20101210
  Receipt Date: 20101207
  Transmission Date: 20110411
  Serious: Yes (Hospitalization)
  Sender: FDA-Public Use
  Company Number: GB-ROCHE-739925

PATIENT
  Sex: Female

DRUGS (4)
  1. TRASTUZUMAB [Suspect]
     Dosage: FORM: INFUSION, LAST DOSE PRIOR TO SAE: 07 OCTOBER 2010, TEMPORARILY INTERRUPTED
     Route: 042
     Dates: start: 20100715, end: 20101108
  2. PERTUZUMAB [Suspect]
     Dosage: LAST DOSE PRIOR TO SAE: 07 OCTOBER 2010, TEMPORARILY INTERRUPTED
     Route: 042
     Dates: start: 20100715, end: 20101108
  3. DOCETAXEL [Suspect]
     Dosage: INFUSION, LAST DOSE PRIOR TO SAE: 07 OCTOBER 2010, TEMPORARILY INTERRUPTED
     Route: 042
     Dates: start: 20100615, end: 20101108
  4. CARBOPLATIN [Suspect]
     Dosage: INFUSION, LAST DOSE PRIOR TO SAE: 07 OCTOBER 2010 , TEMPORARILY INTERRUPTED
     Route: 042
     Dates: start: 20100615, end: 20101108

REACTIONS (1)
  - CONVULSION [None]
